FAERS Safety Report 14814512 (Version 1)
Quarter: 2018Q2

REPORT INFORMATION
  Report Type: Spontaneous
  Country: US (occurrence: US)
  Receive Date: 20180426
  Receipt Date: 20180426
  Transmission Date: 20180711
  Serious: No
  Sender: FDA-Public Use
  Company Number: US-PFIZER INC-2018165598

PATIENT
  Age: 69 Year
  Sex: Male
  Weight: 76.66 kg

DRUGS (3)
  1. ZYRTEC [Concomitant]
     Active Substance: CETIRIZINE HYDROCHLORIDE
     Indication: SEASONAL ALLERGY
     Dosage: ORALLY, CAPSULE, ONCE A DAY EVERY MORNING
     Route: 048
  2. ASPIRIN. [Concomitant]
     Active Substance: ASPIRIN
     Indication: MYOCARDIAL INFARCTION
     Dosage: 125 MG, TABLET, ORALLY, ONCE A DAY EVERY MORNING
     Route: 048
  3. VIAGRA [Suspect]
     Active Substance: SILDENAFIL CITRATE
     Indication: ERECTILE DYSFUNCTION
     Dosage: 100 MG, WEEKLY
     Route: 048
     Dates: start: 2018

REACTIONS (1)
  - Cyanosis [Recovered/Resolved]

NARRATIVE: CASE EVENT DATE: 2018
